FAERS Safety Report 8661613 (Version 4)
Quarter: 2012Q4

REPORT INFORMATION
  Report Type: Report from Study
  Country: FR (occurrence: FR)
  Receive Date: 20120712
  Receipt Date: 20120831
  Transmission Date: 20130627
  Serious: Yes (Hospitalization)
  Sender: FDA-Public Use
  Company Number: FR-TEVA-347457USA

PATIENT
  Age: 71 Year
  Sex: Female
  Weight: 58.7 kg

DRUGS (13)
  1. TREANDA [Suspect]
     Indication: MANTLE CELL LYMPHOMA
     Dosage: 147.6 Milligram Daily;
     Route: 041
     Dates: start: 20120614, end: 20120615
  2. VELCADE [Suspect]
     Indication: MANTLE CELL LYMPHOMA
     Route: 058
     Dates: start: 20120614
  3. MABTHERA [Suspect]
     Indication: MANTLE CELL LYMPHOMA
     Route: 041
     Dates: start: 20120614
  4. DEXAMETHASONE [Suspect]
     Indication: MANTLE CELL LYMPHOMA
     Dosage: 40 Milligram Daily;
     Route: 041
     Dates: start: 20120615
  5. SOTALOL [Concomitant]
     Dates: start: 2007, end: 20120624
  6. BACTRIM [Concomitant]
     Dates: start: 20120618, end: 20120624
  7. ZELITREX [Concomitant]
     Dates: start: 20120618, end: 20120624
  8. ZOLPIDEM [Concomitant]
     Dates: start: 20120618, end: 20120624
  9. GLUCOPHAGE [Concomitant]
     Indication: TYPE 2 DIABETES MELLITUS
     Dosage: 2000 Milligram Daily;
     Route: 048
     Dates: start: 2007
  10. GLIMEPIRIDE [Concomitant]
     Indication: TYPE 2 DIABETES MELLITUS
     Dosage: 1 Milligram Daily;
     Dates: start: 2007
  11. DIFFU K [Concomitant]
     Indication: HYPOKALAEMIA
     Dosage: 600 Milligram Daily;
     Route: 048
     Dates: start: 2007
  12. ODRIK [Concomitant]
     Indication: HYPERTENSION
     Dosage: 2 Milligram Daily;
     Route: 048
     Dates: start: 2007
  13. TAHOR [Concomitant]
     Indication: HYPERCHOLESTEROLAEMIA
     Dosage: 10 Milligram Daily;
     Route: 048
     Dates: start: 2007

REACTIONS (3)
  - Hypoglycaemia [Recovered/Resolved]
  - Infection [Recovered/Resolved]
  - Pyrexia [Recovered/Resolved]
